FAERS Safety Report 24022347 (Version 1)
Quarter: 2024Q2

REPORT INFORMATION
  Report Type: Report from Study
  Country: IN (occurrence: IN)
  Receive Date: 20240627
  Receipt Date: 20240627
  Transmission Date: 20240715
  Serious: No
  Sender: FDA-Public Use
  Company Number: IN-ROCHE-3524074

PATIENT
  Sex: Male

DRUGS (2)
  1. ENTRECTINIB [Suspect]
     Active Substance: ENTRECTINIB
     Indication: Lung neoplasm malignant
     Route: 065
     Dates: end: 20240131
  2. ENTRECTINIB [Suspect]
     Active Substance: ENTRECTINIB
     Route: 065
     Dates: start: 20240217

REACTIONS (1)
  - Disorientation [Recovering/Resolving]
